FAERS Safety Report 17882667 (Version 2)
Quarter: 2020Q3

REPORT INFORMATION
  Report Type: Spontaneous
  Country: US (occurrence: US)
  Receive Date: 20200610
  Receipt Date: 20200702
  Transmission Date: 20201103
  Serious: Yes (Other)
  Sender: FDA-Public Use
  Company Number: US-GILEAD-2020-0470043

PATIENT
  Age: 63 Year
  Sex: Female
  Weight: 155.9 kg

DRUGS (19)
  1. GABAPENTIN. [Concomitant]
     Active Substance: GABAPENTIN
  2. INSULIN LISPRO [Concomitant]
     Active Substance: INSULIN LISPRO
  3. PENCILLIN [Concomitant]
     Active Substance: PENICILLIN
  4. NOREPINEPHRINE. [Concomitant]
     Active Substance: NOREPINEPHRINE
  5. REMDESIVIR. [Suspect]
     Active Substance: REMDESIVIR
     Dosage: 100 UNK
     Route: 042
     Dates: start: 20200525, end: 20200527
  6. BUSPIRONE [Concomitant]
     Active Substance: BUSPIRONE HYDROCHLORIDE
  7. DULOXETINE. [Concomitant]
     Active Substance: DULOXETINE
  8. MELATONIN [Concomitant]
     Active Substance: MELATONIN
  9. PROPOFOL. [Concomitant]
     Active Substance: PROPOFOL
  10. LOSARTAN. [Concomitant]
     Active Substance: LOSARTAN
  11. AMLODIPINE [Concomitant]
     Active Substance: AMLODIPINE BESYLATE
  12. PREDNISONE. [Concomitant]
     Active Substance: PREDNISONE
  13. ROCURONIUM [Concomitant]
     Active Substance: ROCURONIUM BROMIDE
  14. LEVOTHYROXINE. [Concomitant]
     Active Substance: LEVOTHYROXINE
  15. POTASSIUM [Concomitant]
     Active Substance: POTASSIUM
  16. LORAZEPAM. [Concomitant]
     Active Substance: LORAZEPAM
  17. REMDESIVIR. [Suspect]
     Active Substance: REMDESIVIR
     Indication: COVID-19
     Dosage: 200 MG, QD
     Route: 042
     Dates: start: 20200524, end: 20200524
  18. OXYBUTIN [Concomitant]
     Active Substance: OXYBUTYNIN
     Dosage: UNK
     Dates: end: 20200501
  19. ENOXAPARIN [Concomitant]
     Active Substance: ENOXAPARIN

REACTIONS (1)
  - Liver function test increased [Not Recovered/Not Resolved]

NARRATIVE: CASE EVENT DATE: 20200528
